FAERS Safety Report 12673634 (Version 3)
Quarter: 2016Q4

REPORT INFORMATION
  Report Type: Spontaneous
  Country: US (occurrence: US)
  Receive Date: 20160822
  Receipt Date: 20161012
  Transmission Date: 20170207
  Serious: No
  Sender: FDA-Public Use
  Company Number: US-PFIZER INC-2016375861

PATIENT
  Age: 85 Year
  Sex: Male
  Weight: 85 kg

DRUGS (2)
  1. GENOTROPIN [Suspect]
     Active Substance: SOMATROPIN
     Indication: GENERAL PHYSICAL CONDITION ABNORMAL
  2. GENOTROPIN [Suspect]
     Active Substance: SOMATROPIN
     Indication: SUPPLEMENTATION THERAPY
     Dosage: 2.0 MG, 1X/DAY (5 DAYS A WK)
     Dates: start: 20160209

REACTIONS (3)
  - Sluggishness [Recovered/Resolved]
  - Fatigue [Recovered/Resolved]
  - Drug ineffective for unapproved indication [Recovered/Resolved]
